FAERS Safety Report 19321341 (Version 2)
Quarter: 2021Q2

REPORT INFORMATION
  Report Type: Report from Study
  Country: US (occurrence: US)
  Receive Date: 20210527
  Receipt Date: 20210602
  Transmission Date: 20210717
  Serious: Yes (Life-Threatening, Hospitalization, Other)
  Sender: FDA-Public Use
  Company Number: US-BIOGEN-2021BI01014235

PATIENT
  Sex: Female

DRUGS (2)
  1. TECFIDERA [Suspect]
     Active Substance: DIMETHYL FUMARATE
     Indication: MULTIPLE SCLEROSIS
     Route: 065
     Dates: start: 20150819, end: 20180110
  2. TECFIDERA [Suspect]
     Active Substance: DIMETHYL FUMARATE
     Route: 065
     Dates: start: 20180208, end: 20201102

REACTIONS (14)
  - Exposure to fungus [Unknown]
  - Aspiration [Unknown]
  - Gastrooesophageal reflux disease [Unknown]
  - Pneumonia aspiration [Unknown]
  - Insomnia [Unknown]
  - Lymphadenopathy [Not Recovered/Not Resolved]
  - Oesophageal achalasia [Unknown]
  - Pulmonary fibrosis [Unknown]
  - Feeling cold [Unknown]
  - Pneumonia [Unknown]
  - Cardiac arrest [Unknown]
  - Nausea [Not Recovered/Not Resolved]
  - Systemic lupus erythematosus [Not Recovered/Not Resolved]
  - Dysphagia [Not Recovered/Not Resolved]
